FAERS Safety Report 5935620-6 (Version None)
Quarter: 2008Q4

REPORT INFORMATION
  Report Type: 
  Country: None (occurrence: None)
  Receive Date: 20081030
  Receipt Date: 20081028
  Transmission Date: 20090506
  Serious: Yes (Hospitalization)
  Sender: FDA-Public Use
  Company Number: D0059068A

PATIENT
  Age: 64 Year
  Sex: Male
  Weight: 182 kg

DRUGS (1)
  1. AVANDIA [Suspect]
     Dosage: 4MG PER DAY
     Route: 048
     Dates: start: 20060101, end: 20080626

REACTIONS (6)
  - CONVULSION [None]
  - DIZZINESS [None]
  - HYPERHIDROSIS [None]
  - HYPOGLYCAEMIA [None]
  - LOSS OF CONSCIOUSNESS [None]
  - MALAISE [None]
